FAERS Safety Report 18445583 (Version 4)
Quarter: 2025Q3

REPORT INFORMATION
  Report Type: Spontaneous
  Country: EU (occurrence: EU)
  Receive Date: 20201030
  Receipt Date: 20250723
  Transmission Date: 20251021
  Serious: Yes (Other)
  Sender: PFIZER
  Company Number: EU-002147023-NVSC2020DE282945

PATIENT
  Sex: Female

DRUGS (11)
  1. METHOTREXATE SODIUM [Suspect]
     Active Substance: METHOTREXATE SODIUM
     Indication: Rheumatic fever
     Dosage: 25 MG, WEEKLY
  2. METHOTREXATE SODIUM [Suspect]
     Active Substance: METHOTREXATE SODIUM
  3. INFLUENZA VIRUS VACCINE [Suspect]
     Active Substance: INFLUENZA VIRUS VACCINE
  4. CALCIUM [Concomitant]
     Active Substance: CALCIUM
  5. CORTISONE [Concomitant]
     Active Substance: CORTISONE
  6. FOLIC ACID [Concomitant]
     Active Substance: FOLIC ACID
     Indication: Rheumatic fever
     Dosage: 15 MG, WEEKLY
  7. IBUPROFEN [Concomitant]
     Active Substance: IBUPROFEN
     Indication: Rheumatic fever
     Dosage: 600 MG, 3X/DAY
  8. MAGNESIUM [Concomitant]
     Active Substance: MAGNESIUM
  9. PREDNISOLONE [Concomitant]
     Active Substance: PREDNISOLONE
     Indication: Rheumatic fever
  10. PREDNISOLONE [Concomitant]
     Active Substance: PREDNISOLONE
     Dosage: 5 MG, 1X/DAY
  11. VITAMIN D3 [Concomitant]
     Active Substance: CHOLECALCIFEROL

REACTIONS (7)
  - Rheumatoid arthritis [Recovered/Resolved]
  - Rheumatic disorder [Unknown]
  - Rheumatoid nodule [Recovered/Resolved]
  - Rheumatoid nodule [Recovered/Resolved]
  - Gait inability [Unknown]
  - Insomnia [Recovered/Resolved]
  - Pain [Recovered/Resolved]

NARRATIVE: CASE EVENT DATE: 20180101
